FAERS Safety Report 9717748 (Version 1)
Quarter: 2013Q4

REPORT INFORMATION
  Report Type: Report from Study
  Country: US (occurrence: US)
  Receive Date: 20131127
  Receipt Date: 20131127
  Transmission Date: 20140711
  Serious: Yes (Hospitalization)
  Sender: FDA-Public Use
  Company Number: US-GLAXOSMITHKLINE-A1050503A

PATIENT
  Age: 65 Year
  Sex: Male
  Weight: 67.3 kg

DRUGS (2)
  1. TRAMETINIB [Suspect]
     Indication: NEOPLASM
     Dosage: 2MG PER DAY
     Route: 048
     Dates: start: 20131004
  2. GSK2141795 [Suspect]
     Indication: NEOPLASM
     Route: 048
     Dates: start: 20131004

REACTIONS (3)
  - Fatigue [Not Recovered/Not Resolved]
  - Diarrhoea [Not Recovered/Not Resolved]
  - Abscess [Not Recovered/Not Resolved]
